FAERS Safety Report 4667038-0 (Version None)
Quarter: 2005Q2

REPORT INFORMATION
  Report Type: 
  Country: None (occurrence: None)
  Receive Date: 20050520
  Receipt Date: 20040831
  Transmission Date: 20051028
  Serious: Yes (Other)
  Sender: FDA-Public Use
  Company Number: PHEH2004US09514

PATIENT
  Sex: 0

DRUGS (2)
  1. ZOMETA [Suspect]
     Dosage: UNK/UNK
  2. AREDIA [Suspect]
     Dosage: UNK/UNK

REACTIONS (1)
  - OSTEONECROSIS [None]
